FAERS Safety Report 24847105 (Version 3)
Quarter: 2025Q1

REPORT INFORMATION
  Report Type: Spontaneous
  Country: DE (occurrence: DE)
  Receive Date: 20250115
  Receipt Date: 20250331
  Transmission Date: 20250409
  Serious: Yes (Other)
  Sender: AUROBINDO
  Company Number: DE-UCBSA-2024067521

PATIENT
  Age: 42 Year
  Sex: Male

DRUGS (22)
  1. LACOSAMIDE [Suspect]
     Active Substance: LACOSAMIDE
     Indication: Seizure
     Route: 065
  2. LACOSAMIDE [Suspect]
     Active Substance: LACOSAMIDE
     Indication: Epilepsy
  3. LEVETIRACETAM [Suspect]
     Active Substance: LEVETIRACETAM
     Indication: Seizure
     Route: 065
  4. LEVETIRACETAM [Suspect]
     Active Substance: LEVETIRACETAM
     Indication: Epilepsy
  5. ZONISAMIDE [Suspect]
     Active Substance: ZONISAMIDE
     Indication: Seizure
     Route: 065
  6. ZONISAMIDE [Suspect]
     Active Substance: ZONISAMIDE
     Indication: Epilepsy
  7. BRIVARACETAM [Suspect]
     Active Substance: BRIVARACETAM
     Indication: Seizure
     Route: 065
  8. BRIVARACETAM [Suspect]
     Active Substance: BRIVARACETAM
     Indication: Epilepsy
  9. VALPROATE [Suspect]
     Active Substance: VALPROIC ACID
     Indication: Seizure
     Route: 065
  10. VALPROATE [Suspect]
     Active Substance: VALPROIC ACID
     Indication: Epilepsy
  11. CARBAMAZEPINE [Concomitant]
     Active Substance: CARBAMAZEPINE
     Indication: Seizure
     Dosage: 600 MILLIGRAM, ONCE A DAY
     Route: 065
  12. CARBAMAZEPINE [Concomitant]
     Active Substance: CARBAMAZEPINE
     Indication: Epilepsy
  13. PERAMPANEL [Concomitant]
     Active Substance: PERAMPANEL
     Indication: Seizure
     Route: 065
  14. PERAMPANEL [Concomitant]
     Active Substance: PERAMPANEL
     Indication: Epilepsy
  15. CLOBAZAM [Concomitant]
     Active Substance: CLOBAZAM
     Indication: Seizure
     Route: 065
  16. CLOBAZAM [Concomitant]
     Active Substance: CLOBAZAM
     Indication: Epilepsy
     Route: 065
  17. CLOBAZAM [Concomitant]
     Active Substance: CLOBAZAM
     Route: 065
  18. TOPIRAMATE [Concomitant]
     Active Substance: TOPIRAMATE
     Indication: Seizure
     Route: 065
  19. TOPIRAMATE [Concomitant]
     Active Substance: TOPIRAMATE
     Indication: Epilepsy
  20. PERPHENAZINE [Concomitant]
     Active Substance: PERPHENAZINE
     Indication: Seizure
     Route: 065
  21. OXCARBAZEPINE [Concomitant]
     Active Substance: OXCARBAZEPINE
     Indication: Seizure
     Route: 065
  22. OXCARBAZEPINE [Concomitant]
     Active Substance: OXCARBAZEPINE
     Indication: Epilepsy

REACTIONS (3)
  - Epilepsia partialis continua [Not Recovered/Not Resolved]
  - Multiple-drug resistance [Unknown]
  - Drug ineffective [Unknown]
